FAERS Safety Report 9887901 (Version 19)
Quarter: 2016Q2

REPORT INFORMATION
  Report Type: Spontaneous
  Country: GB (occurrence: GB)
  Receive Date: 20140211
  Receipt Date: 20160530
  Transmission Date: 20160815
  Serious: Yes (Life-Threatening, Hospitalization, Other)
  Sender: FDA-Public Use
  Company Number: GB-ACTAVIS-2014-02052

PATIENT
  Sex: Female

DRUGS (4)
  1. CODEINE (UNKNOWN) [Suspect]
     Active Substance: CODEINE
     Indication: PRODUCT USED FOR UNKNOWN INDICATION
     Dosage: UNK
     Route: 065
  2. TRAMADOL (UNKNOWN) [Suspect]
     Active Substance: TRAMADOL
     Indication: PRODUCT USED FOR UNKNOWN INDICATION
     Dosage: UNK
     Route: 065
  3. TOPAMAX [Suspect]
     Active Substance: TOPIRAMATE
     Indication: EPILEPSY
     Dosage: UNK
     Route: 048
     Dates: start: 201105, end: 2011
  4. CITALOPRAM [Suspect]
     Active Substance: CITALOPRAM HYDROBROMIDE
     Indication: PRODUCT USED FOR UNKNOWN INDICATION
     Dosage: 30 MG, DAILY
     Route: 048

REACTIONS (18)
  - Aggression [Unknown]
  - Anger [Unknown]
  - Organ failure [Unknown]
  - Acidosis [Recovered/Resolved]
  - Borderline personality disorder [Unknown]
  - Coma [Recovered/Resolved]
  - Brain oedema [Unknown]
  - Weight decreased [Unknown]
  - Dialysis [Unknown]
  - Life support [Unknown]
  - Metabolic acidosis [Recovered/Resolved]
  - Migraine [Unknown]
  - Personality change [Unknown]
  - Dysarthria [Unknown]
  - Hypersensitivity [Unknown]
  - Cerebral haemorrhage [Unknown]
  - Seizure [Unknown]
  - Overdose [Recovered/Resolved]

NARRATIVE: CASE EVENT DATE: 2011
